FAERS Safety Report 10154304 (Version 1)
Quarter: 2014Q2

REPORT INFORMATION
  Report Type: Spontaneous
  Country: US (occurrence: US)
  Receive Date: 20140506
  Receipt Date: 20140506
  Transmission Date: 20141212
  Serious: Yes (Hospitalization)
  Sender: FDA-Public Use
  Company Number: US-BAYER-2014-064723

PATIENT
  Age: 50 Year
  Sex: Female
  Weight: 74 kg

DRUGS (11)
  1. YAZ [Suspect]
  2. GIANVI [Suspect]
  3. YASMIN [Suspect]
  4. AZITHROMYCIN [Concomitant]
     Dosage: 250 MG, UNK
  5. FLUTICASONE [Concomitant]
     Dosage: 50 ?G, UNK
  6. PRISTIQ [Concomitant]
     Dosage: 50 MG, UNK
  7. LEXAPRO [Concomitant]
  8. IBUPROFEN [Concomitant]
  9. SINGULAIR [Concomitant]
  10. PRILOSEC [Concomitant]
  11. ARMOUR THYROID [Concomitant]
     Dosage: 60 MG, UNK

REACTIONS (1)
  - Pulmonary embolism [None]
